FAERS Safety Report 24157947 (Version 2)
Quarter: 2024Q3

REPORT INFORMATION
  Report Type: Spontaneous
  Country: JP (occurrence: JP)
  Receive Date: 20240731
  Receipt Date: 20240830
  Transmission Date: 20241016
  Serious: Yes (Other)
  Sender: Harrow Health
  Company Number: JP-IMP-2024000553

PATIENT

DRUGS (2)
  1. NEVANAC [Suspect]
     Active Substance: NEPAFENAC
     Indication: Retinopexy
     Route: 047
     Dates: start: 202311, end: 202405
  2. NEVANAC [Suspect]
     Active Substance: NEPAFENAC
     Indication: Retinopexy
     Route: 047
     Dates: start: 202406

REACTIONS (1)
  - Macular oedema [Recovering/Resolving]

NARRATIVE: CASE EVENT DATE: 20240101
